FAERS Safety Report 25431452 (Version 1)
Quarter: 2025Q2

REPORT INFORMATION
  Report Type: Spontaneous
  Country: US (occurrence: US)
  Receive Date: 20250613
  Receipt Date: 20250613
  Transmission Date: 20250717
  Serious: No
  Sender: UNITED THERAPEUTICS
  Company Number: US-UNITED THERAPEUTICS-UNT-2025-016637

PATIENT
  Sex: Male
  Weight: 56 kg

DRUGS (3)
  1. REMODULIN [Suspect]
     Active Substance: TREPROSTINIL
     Indication: Pulmonary arterial hypertension
  2. REMODULIN [Suspect]
     Active Substance: TREPROSTINIL
     Indication: Heart disease congenital
  3. REMODULIN [Suspect]
     Active Substance: TREPROSTINIL

REACTIONS (1)
  - Device maintenance issue [Not Recovered/Not Resolved]
